FAERS Safety Report 6459972-6 (Version None)
Quarter: 2009Q4

REPORT INFORMATION
  Report Type: 
  Country: None (occurrence: None)
  Receive Date: 20091129
  Receipt Date: 20091117
  Transmission Date: 20100525
  Serious: Yes (Other)
  Sender: FDA-Public Use
  Company Number: PHHY2009DE50700

PATIENT

DRUGS (2)
  1. RASILEZ [Suspect]
     Indication: HYPERTENSION
     Dosage: 1 DF, QD
  2. ACE INHIBITOR NOS [Concomitant]

REACTIONS (3)
  - BLOOD PRESSURE INCREASED [None]
  - NOREPINEPHRINE INCREASED [None]
  - PARADOXICAL DRUG REACTION [None]
